FAERS Safety Report 18424833 (Version 1)
Quarter: 2020Q4

REPORT INFORMATION
  Report Type: Report from Study
  Country: ES (occurrence: ES)
  Receive Date: 20201026
  Receipt Date: 20201026
  Transmission Date: 20210114
  Serious: Yes (Life-Threatening, Hospitalization)
  Sender: FDA-Public Use
  Company Number: ES-ACCORD-206143

PATIENT
  Age: 76 Year
  Sex: Female

DRUGS (8)
  1. RAMIPRIL. [Concomitant]
     Active Substance: RAMIPRIL
     Dosage: RAMIPRIL (2497A)
  2. FUROSEMIDE. [Concomitant]
     Active Substance: FUROSEMIDE
     Dosage: FUROSEMIDE (1615A)
  3. OMEPRAZOLE. [Concomitant]
     Active Substance: OMEPRAZOLE
     Dosage: OMEPRAZOLE (2141A)
  4. ACETYLCYSTEINE. [Concomitant]
     Active Substance: ACETYLCYSTEINE
     Dosage: ACETYLCYSTEINE (233A)
  5. NIFEDIPINE. [Concomitant]
     Active Substance: NIFEDIPINE
     Dosage: NIFEDIPINE (3253A)
  6. PAROXETINE. [Concomitant]
     Active Substance: PAROXETINE
     Dosage: PAROXETINE (2586A)
  7. ONDANSETRON [Suspect]
     Active Substance: ONDANSETRON
     Indication: ABDOMINAL PAIN
     Dosage: ONDANSETRON (2575A)
     Dates: start: 20200130, end: 20200130
  8. CARVEDILOL/CARVEDILOL HYDROCHLODRIDE [Concomitant]
     Active Substance: CARVEDILOL HYDROCHLORIDE
     Dosage: CARVEDILOL (2431A)

REACTIONS (4)
  - Pruritus [Recovered/Resolved]
  - Skin reaction [Recovered/Resolved]
  - Dyspnoea [Recovered/Resolved]
  - Bronchospasm [Recovered/Resolved]

NARRATIVE: CASE EVENT DATE: 20200130
